FAERS Safety Report 9282853 (Version 2)
Quarter: 2014Q3

REPORT INFORMATION
  Report Type: Spontaneous
  Country: US (occurrence: US)
  Receive Date: 20130510
  Receipt Date: 20140811
  Transmission Date: 20150326
  Serious: Yes (Hospitalization, Other)
  Sender: FDA-Public Use
  Company Number: US-BAYER-2013-057886

PATIENT
  Age: 22 Year
  Sex: Female
  Weight: 91 kg

DRUGS (2)
  1. YASMIN [Suspect]
     Active Substance: DROSPIRENONE\ETHINYL ESTRADIOL
     Indication: PREMENSTRUAL DYSPHORIC DISORDER
     Dosage: UNK
     Dates: start: 2005, end: 2009
  2. YAZ [Suspect]
     Active Substance: DROSPIRENONE\ETHINYL ESTRADIOL
     Indication: PREMENSTRUAL DYSPHORIC DISORDER
     Dosage: UNK
     Dates: start: 2005, end: 2009

REACTIONS (22)
  - Limb injury [None]
  - Pain [None]
  - Bacterial disease carrier [None]
  - Phlebitis [None]
  - Lung disorder [None]
  - Thrombosis [None]
  - Injury [None]
  - Emotional distress [None]
  - Muscle spasms [None]
  - Pneumonia necrotising [None]
  - Muscular weakness [None]
  - Discomfort [None]
  - Heart rate increased [None]
  - Venous injury [None]
  - Mobility decreased [None]
  - Pulmonary embolism [None]
  - Chest pain [None]
  - Deep vein thrombosis [None]
  - Abdominal pain [None]
  - Asthenia [None]
  - Anxiety [None]
  - Varicose vein [None]

NARRATIVE: CASE EVENT DATE: 200910
